FAERS Safety Report 7020078-9 (Version None)
Quarter: 2010Q3

REPORT INFORMATION
  Report Type: 
  Country: None (occurrence: None)
  Receive Date: 20100927
  Receipt Date: 20100916
  Transmission Date: 20110219
  Serious: Yes (Other)
  Sender: FDA-Public Use
  Company Number: 1000016277

PATIENT
  Age: 46 Year
  Sex: Female
  Weight: 115.6 kg

DRUGS (20)
  1. SAVELLA [Suspect]
     Indication: FIBROMYALGIA
     Dosage: SEE IMAGE
     Route: 048
     Dates: start: 20100601, end: 20100601
  2. SAVELLA [Suspect]
     Indication: FIBROMYALGIA
     Dosage: SEE IMAGE
     Route: 048
     Dates: start: 20100601, end: 20100601
  3. SAVELLA [Suspect]
     Indication: FIBROMYALGIA
     Dosage: SEE IMAGE
     Route: 048
     Dates: start: 20100601, end: 20100601
  4. SAVELLA [Suspect]
     Indication: FIBROMYALGIA
     Dosage: SEE IMAGE
     Route: 048
     Dates: start: 20100601, end: 20100701
  5. SAVELLA [Suspect]
     Indication: FIBROMYALGIA
     Dosage: SEE IMAGE
     Route: 048
     Dates: start: 20100701, end: 20100801
  6. SAVELLA [Suspect]
     Indication: FIBROMYALGIA
     Dosage: 400 MG (200 MG,2 IN 1 D),ORAL
     Route: 048
     Dates: start: 20100801, end: 20100914
  7. MAXAIR (PIRBUTEROL ACETATE) (INHALANT) (PIRBUTEROL ACETATE) [Concomitant]
  8. ADVAIR (FLUTICASONE PROPIONATE) (INHALANT) (FLUTICASONE PROPIONATE) [Concomitant]
  9. PULMICORT (BUDESONIDE INHALATION POWDER) (180 MICROGRAM, INHALANT) (BU [Concomitant]
  10. ZYFLO CR (600 MILLIGRAM, TABLETS) [Concomitant]
  11. THEOPHYLLINE [Concomitant]
  12. XYZAL (LEVOCETIRIZINE DIHDYDROCHLORIDE) (5 MILLIGRAM, TABLETS) (LEVOCE [Concomitant]
  13. RELPAX (ELECTRIPTAN HYDROBROMIDE) (40 MILLIGRAM) (ELETRIPTAN HYDROBROM [Concomitant]
  14. RHINOCORT AQUA (BUDESONIDE) (32 MICROGRAM, NASAL DROPS (INCLUDING NASA [Concomitant]
  15. NEXIUM (ESOMEPRAZOLE) (40 MILLIGRAM, CAPSULES) (ESOMEPRAZOLE) [Concomitant]
  16. TOPAMAX (TOPIRAMATE) (TOPIRAMATE) [Concomitant]
  17. B12 (CYANOCOABALAMIN-TANNIN COMPLEX) (INJECTION) (CYANOCOBALAMIN-TANNI [Concomitant]
  18. PERCOCET (OXYCODONE, ACETAMINOPHEN) (OXYCODONE, ACETAMINOPHEN) [Concomitant]
  19. MULTIVITAMINS (MULTIVITAMINS) (MULTIVITAMINS) [Concomitant]
  20. CALCIUM/VITAMIN D (CALCIUM, VITAMIN D) (CALCIUM, VITAMIN D) [Concomitant]

REACTIONS (5)
  - BLOOD PRESSURE INCREASED [None]
  - CATARACT [None]
  - CONDITION AGGRAVATED [None]
  - OVERDOSE [None]
  - SINUSITIS [None]
